FAERS Safety Report 15656138 (Version 8)
Quarter: 2018Q4

REPORT INFORMATION
  Report Type: Report from Study
  Country: TW (occurrence: TW)
  Receive Date: 20181126
  Receipt Date: 20181221
  Transmission Date: 20190205
  Serious: Yes (Death, Life-Threatening, Hospitalization)
  Sender: FDA-Public Use
  Company Number: TW-ROCHE-2207302

PATIENT
  Age: 69 Year
  Sex: Male
  Weight: 83 kg

DRUGS (43)
  1. CHLORHEXIDINE GLUCONATE. [Concomitant]
     Active Substance: CHLORHEXIDINE GLUCONATE
     Indication: INFECTION PROPHYLAXIS
     Dosage: STRENGTH: 0.12% 250 ML /BTL
     Route: 048
     Dates: start: 20181117
  2. FRESOFOL [Concomitant]
     Indication: SEDATION
     Dosage: 20 MG /20 ML/ AMP
     Route: 042
     Dates: start: 20181120
  3. TIRAGOLUMAB. [Suspect]
     Active Substance: TIRAGOLUMAB
     Indication: NON-SMALL CELL LUNG CANCER
     Dosage: MOST RECENT DOSE AT 13.17
     Route: 042
     Dates: start: 20181008
  4. PARAMOL (ACETAMINOPHEN) [Concomitant]
     Route: 048
     Dates: start: 20181019, end: 20181024
  5. LEVOCETIRIZINE [Concomitant]
     Active Substance: LEVOCETIRIZINE
     Route: 048
     Dates: start: 20181008, end: 20181013
  6. FENTANYL CITRATE. [Concomitant]
     Active Substance: FENTANYL CITRATE
     Indication: SEDATION
     Dosage: 0.5MG/10 ML
     Route: 042
     Dates: start: 20181118
  7. HEPARIN SODIUM. [Concomitant]
     Active Substance: HEPARIN SODIUM
     Route: 042
     Dates: start: 20181114, end: 20181114
  8. NINCORT [Concomitant]
     Indication: MUCOSAL INFLAMMATION
     Dosage: 0.1% 6 G /TUBE
     Route: 061
     Dates: start: 20181118
  9. PARAMOL (ACETAMINOPHEN) [Concomitant]
     Indication: UPPER RESPIRATORY TRACT INFECTION
     Route: 048
     Dates: start: 20181018
  10. DOXAZOSIN MESYLATE. [Concomitant]
     Active Substance: DOXAZOSIN MESYLATE
     Indication: BENIGN PROSTATIC HYPERPLASIA
     Route: 048
  11. LEVOCETIRIZINE [Concomitant]
     Active Substance: LEVOCETIRIZINE
     Indication: RHINORRHOEA
     Route: 048
     Dates: start: 20181001, end: 20181006
  12. ALPRALINE [Concomitant]
     Active Substance: ALPRAZOLAM
     Route: 048
     Dates: start: 20181113, end: 20181113
  13. ANXICAM [Concomitant]
     Dosage: 2 MG/1 ML
     Route: 042
     Dates: start: 20181119, end: 20181119
  14. AUGMENTIN [Concomitant]
     Active Substance: AMOXICILLIN\CLAVULANATE POTASSIUM
     Indication: UPPER RESPIRATORY TRACT INFECTION
     Route: 048
     Dates: start: 20181019, end: 20181024
  15. MEDICON (DEXTROMETHORPHAN HYDROBROMIDE) [Concomitant]
     Active Substance: DEXTROMETHORPHAN HYDROBROMIDE
     Indication: UPPER RESPIRATORY TRACT INFECTION
     Route: 048
     Dates: start: 20181019, end: 20181024
  16. CALCIUM CHLORIDE. [Concomitant]
     Active Substance: CALCIUM CHLORIDE
     Indication: HYPOCALCAEMIA
     Dosage: 10.8 OTHER?STRENGTH: 5.4 MEQ/20 ML /AMP)
     Route: 042
     Dates: start: 20181114, end: 20181114
  17. CALCIUM CHLORIDE. [Concomitant]
     Active Substance: CALCIUM CHLORIDE
     Dosage: 10.8 OTHER?STRENGTH: 5.4 MEQ/20 ML /AMP)
     Route: 042
     Dates: start: 20181120
  18. DESMOPRESSIN ACETATE. [Concomitant]
     Active Substance: DESMOPRESSIN ACETATE
     Indication: SEDATION
     Dosage: 200 OTHER?STRENGTH: 4 MCG/1 ML /AMP
     Route: 042
     Dates: start: 20181118
  19. HEPARIN SODIUM. [Concomitant]
     Active Substance: HEPARIN SODIUM
     Route: 042
     Dates: start: 20181116, end: 20181116
  20. ROLIKAN [Concomitant]
     Indication: HAEMODIALYSIS
     Dosage: 250 ML/BTL
     Route: 042
     Dates: start: 20181114, end: 20181114
  21. PARAMOL (ACETAMINOPHEN) [Concomitant]
     Indication: PAIN
     Route: 048
     Dates: start: 20180919
  22. C.B. OINTMENT [Concomitant]
     Indication: DERMATITIS ALLERGIC
     Route: 061
     Dates: start: 20180925, end: 20181002
  23. DUTASTERIDE. [Concomitant]
     Active Substance: DUTASTERIDE
     Indication: BENIGN PROSTATIC HYPERPLASIA
     Route: 048
  24. XYZAL [Concomitant]
     Active Substance: LEVOCETIRIZINE DIHYDROCHLORIDE
     Indication: RHINORRHOEA
     Route: 048
     Dates: start: 20180929
  25. HEPARIN SODIUM. [Concomitant]
     Active Substance: HEPARIN SODIUM
     Indication: HAEMODIALYSIS
     Route: 042
     Dates: start: 20181113, end: 20181113
  26. HEPARIN SODIUM. [Concomitant]
     Active Substance: HEPARIN SODIUM
     Route: 042
     Dates: start: 20181121, end: 20181121
  27. ALLEGRA [Concomitant]
     Active Substance: FEXOFENADINE HYDROCHLORIDE
     Indication: UPPER RESPIRATORY TRACT INFECTION
     Route: 048
     Dates: start: 20180919, end: 20181024
  28. METHACIN GEL [Concomitant]
     Indication: PAIN IN EXTREMITY
     Dosage: 1% 20 G /TUBE
     Route: 061
     Dates: start: 20181104
  29. DIPHENHYDRAMINE HCL [Concomitant]
     Active Substance: DIPHENHYDRAMINE HYDROCHLORIDE
     Indication: PROPHYLAXIS
     Dosage: 30 MG/1 ML/ AMP?PROPHYLAXIS FOR SIDE EFFECT OF BLOOD TRANSFUSION
     Route: 042
     Dates: start: 20181113
  30. ASCORBIC ACID. [Concomitant]
     Active Substance: ASCORBIC ACID
     Indication: HYPOCALCAEMIA
     Dosage: STRENGTH: 100 MG/2 ML /AMP)
     Route: 042
     Dates: start: 20181114, end: 20181116
  31. MIDAZOLAM [Concomitant]
     Active Substance: MIDAZOLAM HYDROCHLORIDE
     Indication: SEDATION
     Dosage: 15 MG /3 ML/AMOP
     Route: 042
     Dates: start: 20181116, end: 20181116
  32. MIDAZOLAM [Concomitant]
     Active Substance: MIDAZOLAM HYDROCHLORIDE
     Dosage: 15 MG /3 ML/AMOP
     Route: 042
     Dates: start: 20181120, end: 20181120
  33. MIDAZOLAM [Concomitant]
     Active Substance: MIDAZOLAM HYDROCHLORIDE
     Dosage: 15 MG /3 ML/AMP
     Route: 042
     Dates: start: 20181126, end: 20181128
  34. POTASSIUM CHLORIDE. [Concomitant]
     Active Substance: POTASSIUM CHLORIDE
     Indication: HAEMODIALYSIS
     Route: 042
     Dates: start: 20181117
  35. ATEZOLIZUMAB. [Suspect]
     Active Substance: ATEZOLIZUMAB
     Indication: NON-SMALL CELL LUNG CANCER
     Dosage: DATE OF MOST RECENT DOSE WAS 29/OCT/2018 AT 10.30
     Route: 042
     Dates: start: 20181008
  36. ACTEIN [Concomitant]
     Route: 048
     Dates: start: 20181113, end: 20181113
  37. ONEALFA [Concomitant]
     Active Substance: ALFACALCIDOL
     Indication: HYPOCALCAEMIA
     Dosage: 1 TABLET?STRENGTH: 1 MCG/TAB
     Route: 048
     Dates: start: 20181116
  38. ANXICAM [Concomitant]
     Indication: SEDATION
     Dosage: 2 MG/1 ML
     Route: 042
     Dates: start: 20181117, end: 20181117
  39. MIDAZOLAM [Concomitant]
     Active Substance: MIDAZOLAM HYDROCHLORIDE
     Dosage: 15 MG /3 ML/AMP
     Route: 042
     Dates: start: 20181126, end: 20181128
  40. ACTEIN [Concomitant]
     Route: 048
     Dates: start: 20181030, end: 20181105
  41. CALCIUM CHLORIDE. [Concomitant]
     Active Substance: CALCIUM CHLORIDE
     Dosage: 54 OTHER?STRENGTH: 5.4 MEQ/20 ML /AMP)
     Route: 042
     Dates: start: 20181115, end: 20181116
  42. ROLIKAN [Concomitant]
     Dosage: 250 ML/BTL
     Route: 042
     Dates: start: 20181127, end: 20181127
  43. RELAXIN (SUXAMETHONIUM CHLORIDE) [Concomitant]
     Active Substance: SUCCINYLCHOLINE CHLORIDE
     Indication: SEDATION
     Route: 042
     Dates: start: 20181123, end: 20181123

REACTIONS (3)
  - Infusion related reaction [Recovered/Resolved]
  - Atrial fibrillation [Not Recovered/Not Resolved]
  - Epstein-Barr virus infection [Fatal]

NARRATIVE: CASE EVENT DATE: 20181029
